FAERS Safety Report 11598578 (Version 1)
Quarter: 2015Q4

REPORT INFORMATION
  Report Type: Spontaneous
  Country: US (occurrence: US)
  Receive Date: 20151006
  Receipt Date: 20151006
  Transmission Date: 20160304
  Serious: Yes (Hospitalization, Other)
  Sender: FDA-Public Use
  Company Number: PHHY2015US118366

PATIENT
  Age: 26 Year
  Sex: Male

DRUGS (6)
  1. TACROLIMUS. [Suspect]
     Active Substance: TACROLIMUS
     Indication: IMMUNOSUPPRESSION
  2. PREDNISONE. [Suspect]
     Active Substance: PREDNISONE
     Indication: IMMUNOSUPPRESSION
  3. MYCOPHENOLIC ACID. [Suspect]
     Active Substance: MYCOPHENOLIC ACID
     Indication: RENAL TRANSPLANT
     Dosage: 1000 MG, BID
     Route: 065
  4. TACROLIMUS. [Suspect]
     Active Substance: TACROLIMUS
     Indication: RENAL TRANSPLANT
     Dosage: 5 MG (3 MG IN THE MORNING AND 2 MG IN THE EVENING)
     Route: 065
  5. PREDNISONE. [Suspect]
     Active Substance: PREDNISONE
     Indication: RENAL TRANSPLANT
     Dosage: 5 MG, QD
     Route: 065
  6. MYCOPHENOLIC ACID. [Suspect]
     Active Substance: MYCOPHENOLIC ACID
     Indication: IMMUNOSUPPRESSION

REACTIONS (15)
  - Hemianopia [Recovered/Resolved]
  - Disorientation [Recovered/Resolved]
  - Complications of transplanted kidney [Unknown]
  - Confusional state [Recovered/Resolved]
  - White matter lesion [Recovered/Resolved]
  - Epstein-Barr virus infection [Recovered/Resolved]
  - Headache [Recovered/Resolved]
  - Vomiting [Recovered/Resolved]
  - Speech disorder [Recovered/Resolved]
  - Seizure [Recovered/Resolved]
  - Encephalitis viral [Recovered/Resolved]
  - Visual impairment [Recovered/Resolved]
  - Aphasia [Recovered/Resolved]
  - VIth nerve paralysis [Recovered/Resolved]
  - Agitation [Recovered/Resolved]
